FAERS Safety Report 23826935 (Version 1)
Quarter: 2024Q2

REPORT INFORMATION
  Report Type: Report from Study
  Country: BR (occurrence: None)
  Receive Date: 20240507
  Receipt Date: 20240507
  Transmission Date: 20240716
  Serious: Yes (Other)
  Sender: FDA-Public Use
  Company Number: 2024A105877

PATIENT
  Age: 68 Year
  Sex: Male

DRUGS (5)
  1. FARXIGA [Suspect]
     Active Substance: DAPAGLIFLOZIN PROPANEDIOL
     Indication: Diabetes mellitus
     Route: 048
     Dates: end: 202403
  2. QUETIAPINE FUMARATE [Suspect]
     Active Substance: QUETIAPINE FUMARATE
     Route: 048
  3. MPID : 6962(1.01) : INSULIN [Concomitant]
  4. MPID : 41297(1.01) : AMLODIPINE [Concomitant]
  5. MPID : 43744(1.01) : LOSARTAN [Concomitant]

REACTIONS (6)
  - Cerebrovascular accident [Unknown]
  - Pruritus genital [Recovered/Resolved]
  - Depression [Recovered/Resolved]
  - Diabetes mellitus [Unknown]
  - Hypertension [Unknown]
  - Intentional product misuse [Recovered/Resolved]

NARRATIVE: CASE EVENT DATE: 20040101
